FAERS Safety Report 21695760 (Version 1)
Quarter: 2022Q4

REPORT INFORMATION
  Report Type: Spontaneous
  Country: US (occurrence: None)
  Receive Date: 20221206
  Receipt Date: 20221206
  Transmission Date: 20230112
  Serious: No
  Sender: FDA-Public Use
  Company Number: None

PATIENT
  Age: 69 Year
  Sex: Male
  Weight: 59.19 kg

DRUGS (13)
  1. APREPITANT [Suspect]
     Active Substance: APREPITANT
     Indication: Neuroendocrine tumour
     Dosage: OTHER QUANTITY : 125-80MG;?FREQUENCY : AS DIRECTED;?
     Route: 048
  2. DEXAMETHASONE [Concomitant]
     Active Substance: DEXAMETHASONE
  3. LORAZEPAM [Concomitant]
     Active Substance: LORAZEPAM
  4. MORPHINE SULFATE [Concomitant]
     Active Substance: MORPHINE SULFATE
  5. PANTOPRAZOLE [Concomitant]
     Active Substance: PANTOPRAZOLE
  6. POLYETHYLENE GLYCOL [Concomitant]
     Active Substance: POLYETHYLENE GLYCOL
  7. POTASSIUM [Concomitant]
     Active Substance: POTASSIUM
  8. PREDNISONE [Concomitant]
  9. PROCHLORPERAZINE [Concomitant]
     Active Substance: PROCHLORPERAZINE
  10. Pomethegan [Concomitant]
  11. TIZANIDINE [Concomitant]
     Active Substance: TIZANIDINE
  12. traxodone [Concomitant]
  13. VITAMIN D3 [Concomitant]
     Active Substance: CHOLECALCIFEROL

REACTIONS (1)
  - Hospice care [None]
